FAERS Safety Report 5049697-6 (Version None)
Quarter: 2006Q3

REPORT INFORMATION
  Report Type: 
  Country: None (occurrence: None)
  Receive Date: 20060712
  Receipt Date: 20060628
  Transmission Date: 20061208
  Serious: Yes (Death, Congenital Anomaly)
  Sender: FDA-Public Use
  Company Number: US-BOEHRINGER INGELHEIM PHARMACEUTICALS, INC.-2006-BP-07474BP

PATIENT
  Sex: Female
  Weight: 1.36 kg

DRUGS (3)
  1. VIRAMUNE [Suspect]
     Route: 015
  2. TRUVADA [Suspect]
     Route: 015
  3. ZIDOVUDINE [Suspect]
     Route: 042
     Dates: start: 20060506, end: 20060506

REACTIONS (7)
  - CHROMOSOME ABNORMALITY [None]
  - CONGENITAL ANOMALY [None]
  - DEATH NEONATAL [None]
  - DRUG EXPOSURE DURING PREGNANCY [None]
  - HYDROPS FOETALIS [None]
  - INFECTION [None]
  - MATERNAL CONDITION AFFECTING FOETUS [None]
